FAERS Safety Report 8547657 (Version 4)
Quarter: 2013Q2

REPORT INFORMATION
  Report Type: Spontaneous
  Country: US (occurrence: US)
  Receive Date: 20120504
  Receipt Date: 20130416
  Transmission Date: 20140414
  Serious: Yes (Hospitalization, Other)
  Sender: FDA-Public Use
  Company Number: US-009507513-1202USA00036

PATIENT
  Sex: Female

DRUGS (7)
  1. FOSAMAX [Suspect]
     Indication: OSTEOPOROSIS
     Dosage: 10 MG, QD
     Route: 048
     Dates: start: 19960223, end: 20010923
  2. FOSAMAX [Suspect]
     Dosage: 10 MG, QOD
     Route: 048
     Dates: start: 20010924
  3. FOSAMAX [Suspect]
     Dosage: 70 MG, QW
     Route: 048
     Dates: start: 20010924, end: 20020122
  4. FOSAMAX [Suspect]
     Dosage: 10 MG, QD
     Route: 048
     Dates: start: 20020123, end: 2002
  5. FOSAMAX [Suspect]
     Dosage: 70 MG, QW
     Route: 048
     Dates: start: 2002, end: 201009
  6. FOSAMAX [Suspect]
     Indication: OSTEOPOROSIS
     Dosage: UNK
     Route: 048
     Dates: end: 201009
  7. CALTRATE WITH VITAMIN D [Concomitant]
     Dosage: UNK
     Dates: start: 1996

REACTIONS (36)
  - Femur fracture [Unknown]
  - Low turnover osteopathy [Unknown]
  - Tooth disorder [Unknown]
  - Tooth fracture [Unknown]
  - Myofascial pain syndrome [Unknown]
  - Varicose vein [Unknown]
  - Viral infection [Unknown]
  - Tenosynovitis [Unknown]
  - Fibromyalgia [Unknown]
  - Cough [Unknown]
  - Chest pain [Recovered/Resolved]
  - Pneumonia [Unknown]
  - Raynaud^s phenomenon [Unknown]
  - Vaginal haemorrhage [Unknown]
  - Vaginal infection [Unknown]
  - Urinary incontinence [Unknown]
  - Irritable bowel syndrome [Unknown]
  - Scar [Unknown]
  - Urinary tract infection [Unknown]
  - Candida infection [Unknown]
  - Osteoarthritis [Unknown]
  - Migraine [Unknown]
  - Antiphospholipid antibodies [Unknown]
  - Lactose intolerance [Unknown]
  - Rhinitis allergic [Unknown]
  - Depression [Unknown]
  - Mitral valve prolapse [Unknown]
  - Asthma [Unknown]
  - Pain in extremity [Unknown]
  - Abdominal pain [Unknown]
  - Musculoskeletal chest pain [Unknown]
  - Arthralgia [Unknown]
  - Gastrooesophageal reflux disease [Unknown]
  - Myalgia [Unknown]
  - Vomiting [Unknown]
  - Nausea [Unknown]
